FAERS Safety Report 7852746 (Version 4)
Quarter: 2013Q1

REPORT INFORMATION
  Report Type: Spontaneous
  Country: US (occurrence: US)
  Receive Date: 20110311
  Receipt Date: 20130321
  Transmission Date: 20140127
  Serious: Yes (Hospitalization, Disabling, Other)
  Sender: FDA-Public Use
  Company Number: US-MERCK-1103USA00961

PATIENT
  Sex: Female
  Weight: 90.7 kg

DRUGS (5)
  1. FOSAMAX [Suspect]
     Indication: OSTEOPOROSIS
     Dosage: UNK UNK, QW
     Route: 048
  2. FOSAMAX [Suspect]
     Route: 048
  3. ALENDRONATE SODIUM [Suspect]
     Dosage: 4 MG, UNK
     Route: 048
     Dates: start: 20050101, end: 20100527
  4. ALENDRONATE SODIUM [Suspect]
     Dosage: 70 MG, QW
  5. CALCIUM (UNSPECIFIED) (+) VITAMIN D (UNSPECIFIED) [Concomitant]
     Indication: OSTEOPOROSIS

REACTIONS (88)
  - Intramedullary rod insertion [Unknown]
  - Fracture nonunion [Not Recovered/Not Resolved]
  - Surgery [Unknown]
  - Knee operation [Unknown]
  - Hip fracture [Unknown]
  - Arthroscopy [Unknown]
  - Surgery [Unknown]
  - Hypoacusis [Unknown]
  - Foot operation [Unknown]
  - Appendicectomy [Unknown]
  - Meniscus removal [Unknown]
  - Intervertebral disc operation [Unknown]
  - Aspartate aminotransferase increased [Unknown]
  - Femur fracture [Unknown]
  - Femur fracture [Unknown]
  - Foot fracture [Unknown]
  - Tooth extraction [Unknown]
  - Hypertension [Unknown]
  - Neuropathy peripheral [Unknown]
  - Incorrect dose administered [Unknown]
  - Adverse event [Unknown]
  - Periarthritis [Unknown]
  - Joint dislocation [Unknown]
  - Cough [Unknown]
  - Hypertension [Unknown]
  - Insomnia [Unknown]
  - Foot fracture [Unknown]
  - Hypokalaemia [Unknown]
  - Neuroma [Unknown]
  - Hyperaesthesia [Unknown]
  - Impaired healing [Unknown]
  - Fatigue [Unknown]
  - Complex regional pain syndrome [Unknown]
  - Radicular pain [Recovered/Resolved]
  - Joint crepitation [Unknown]
  - Musculoskeletal disorder [Unknown]
  - Vitamin D deficiency [Unknown]
  - Osteoarthritis [Unknown]
  - Meniscus injury [Unknown]
  - Dry mouth [Unknown]
  - Hysterectomy [Unknown]
  - Renal cyst [Unknown]
  - Head injury [Unknown]
  - Osteoarthritis [Unknown]
  - Thyroiditis acute [Unknown]
  - Gastrointestinal disorder [Unknown]
  - Lumbar spinal stenosis [Unknown]
  - Injury [Unknown]
  - Joint injury [Unknown]
  - Joint injury [Unknown]
  - Spinal column injury [Unknown]
  - Back injury [Unknown]
  - Carotid bruit [Unknown]
  - Weight increased [Unknown]
  - Increased tendency to bruise [Unknown]
  - Hypothyroidism [Unknown]
  - Arthropathy [Unknown]
  - Arthropathy [Unknown]
  - Arteriosclerosis [Unknown]
  - Osteoarthritis [Unknown]
  - Enchondroma [Unknown]
  - Dyspnoea [Unknown]
  - Stress fracture [Unknown]
  - Hypoaesthesia [Not Recovered/Not Resolved]
  - Vertebral foraminal stenosis [Unknown]
  - Scoliosis [Unknown]
  - Intervertebral disc degeneration [Unknown]
  - Haemangioma [Unknown]
  - Patellofemoral pain syndrome [Unknown]
  - Bursitis [Unknown]
  - Blood potassium increased [Unknown]
  - Intervertebral disc protrusion [Unknown]
  - Muscle spasms [Unknown]
  - Flatulence [Unknown]
  - Asthenia [Unknown]
  - Muscle spasms [Unknown]
  - Back pain [Unknown]
  - Arthralgia [Unknown]
  - Pain in extremity [Unknown]
  - Alopecia [Unknown]
  - Arthralgia [Unknown]
  - Dizziness [Unknown]
  - Arthralgia [Unknown]
  - Pain in extremity [Unknown]
  - Arthralgia [Unknown]
  - Constipation [Unknown]
  - Gastrooesophageal reflux disease [Unknown]
  - Pyrexia [Unknown]
